FAERS Safety Report 5174325-9 (Version None)
Quarter: 2006Q4

REPORT INFORMATION
  Report Type: 
  Country: None (occurrence: None)
  Receive Date: 20061206
  Receipt Date: 20061113
  Transmission Date: 20070319
  Serious: Yes (Hospitalization)
  Sender: FDA-Public Use
  Company Number: ENTC2006-0337

PATIENT
  Age: 62 Year
  Sex: Male

DRUGS (4)
  1. STALEVO 50 [Suspect]
     Indication: PARKINSON'S DISEASE
     Dosage: 50MG, TID, ORAL
     Route: 048
     Dates: start: 20060901
  2. MIRAPEX [Concomitant]
  3. AZILECT [Concomitant]
  4. ANTIHYPERTENSIVE DRUGS [Concomitant]

REACTIONS (1)
  - SQUAMOUS CELL CARCINOMA [None]
